FAERS Safety Report 11772308 (Version 1)
Quarter: 2015Q4

REPORT INFORMATION
  Report Type: Spontaneous
  Country: US (occurrence: US)
  Receive Date: 20151124
  Receipt Date: 20151124
  Transmission Date: 20160304
  Serious: Yes (Hospitalization)
  Sender: FDA-Public Use
  Company Number: US-INCYTE CORPORATION-2015IN005994

PATIENT
  Age: 57 Year
  Sex: Male

DRUGS (7)
  1. TRAMADOL. [Concomitant]
     Active Substance: TRAMADOL
  2. RESTORIL                           /00393701/ [Concomitant]
  3. PANTOPRAZOLE [Concomitant]
     Active Substance: PANTOPRAZOLE SODIUM
  4. NOXAFIL [Concomitant]
     Active Substance: POSACONAZOLE
  5. MIDRIN                             /00450801/ [Concomitant]
     Active Substance: ACETAMINOPHEN\DICHLORALPHENAZONE\ISOMETHEPTENE HYDROCHLORIDE
  6. JAKAFI [Suspect]
     Active Substance: RUXOLITINIB
     Indication: MYELOFIBROSIS
     Dosage: 5 MG, BID
     Route: 048
     Dates: start: 2015
  7. LEVAQUIN [Concomitant]
     Active Substance: LEVOFLOXACIN

REACTIONS (4)
  - Arthropod bite [Unknown]
  - Pyrexia [Unknown]
  - Staphylococcal infection [Unknown]
  - Device related infection [Unknown]

NARRATIVE: CASE EVENT DATE: 2015
